FAERS Safety Report 7648857-5 (Version None)
Quarter: 2011Q3

REPORT INFORMATION
  Report Type: 
  Country: None (occurrence: None)
  Receive Date: 20110801
  Receipt Date: 20110722
  Transmission Date: 20111222
  Serious: Yes (Other)
  Sender: FDA-Public Use
  Company Number: US-ASTRAZENECA-2011SE43949

PATIENT
  Age: 67 Year
  Sex: Male
  Weight: 92.1 kg

DRUGS (3)
  1. METOPROLOL SUCCINATE [Suspect]
     Indication: ARRHYTHMIA
     Route: 048
     Dates: start: 20100101
  2. SYNTHROID [Concomitant]
     Indication: HYPOTHYROIDISM
  3. AMLODIPINE [Concomitant]
     Route: 048

REACTIONS (10)
  - CHOLECYSTECTOMY [None]
  - DECREASED APPETITE [None]
  - DIZZINESS [None]
  - GALLBLADDER DISORDER [None]
  - THYROID DISORDER [None]
  - NAUSEA [None]
  - OFF LABEL USE [None]
  - GASTROINTESTINAL DISORDER [None]
  - WEIGHT DECREASED [None]
  - VISION BLURRED [None]
